FAERS Safety Report 19828408 (Version 1)
Quarter: 2021Q3

REPORT INFORMATION
  Report Type: Spontaneous
  Country: US (occurrence: US)
  Receive Date: 20210914
  Receipt Date: 20210914
  Transmission Date: 20211014
  Serious: No
  Sender: FDA-Public Use
  Company Number: US-PFIZER INC-202100935558

PATIENT
  Age: 12 Year
  Sex: Female

DRUGS (2)
  1. EUCRISA [Suspect]
     Active Substance: CRISABOROLE
     Indication: DERMATITIS ATOPIC
     Dosage: UNK, 2X/DAY
     Dates: start: 20210714
  2. EUCRISA [Suspect]
     Active Substance: CRISABOROLE
     Indication: ECZEMA

REACTIONS (6)
  - Eczema [Unknown]
  - Pruritus [Unknown]
  - Folliculitis [Unknown]
  - Post inflammatory pigmentation change [Unknown]
  - Melanocytic naevus [Unknown]
  - Pustule [Unknown]
